FAERS Safety Report 12422096 (Version 3)
Quarter: 2017Q1

REPORT INFORMATION
  Report Type: Spontaneous
  Country: JP (occurrence: JP)
  Receive Date: 20160531
  Receipt Date: 20170107
  Transmission Date: 20170428
  Serious: Yes (Other)
  Sender: FDA-Public Use
  Company Number: JP-AMGEN-JPNSP2016069842

PATIENT
  Age: 72 Year
  Sex: Female
  Weight: 65 kg

DRUGS (12)
  1. G-LASTA [Suspect]
     Active Substance: PEGFILGRASTIM
     Indication: PRODUCT USED FOR UNKNOWN INDICATION
     Dosage: 3.6 MG, 1X/MONTH
     Route: 058
     Dates: start: 20160508
  2. DEXART [Concomitant]
     Active Substance: DEXAMETHASONE SODIUM PHOSPHATE
     Dosage: 6.6 MG, 1X/MONTH
     Route: 042
     Dates: start: 20160413, end: 20160506
  3. EMEND [Concomitant]
     Active Substance: APREPITANT
     Dosage: 80 MG, QD
     Route: 048
     Dates: start: 20160414, end: 20160415
  4. CARBOPLATIN. [Concomitant]
     Active Substance: CARBOPLATIN
     Dosage: 600 MG, 1X/MONTH
     Route: 041
     Dates: start: 20160413, end: 20160506
  5. RESTAMIN [Concomitant]
     Active Substance: DIPHENHYDRAMINE
     Dosage: 50 MG, 1X/MONTH
     Route: 048
     Dates: start: 20160413, end: 20160506
  6. FAMOTIDINE. [Concomitant]
     Active Substance: FAMOTIDINE
     Dosage: 20 MG, 1X/MONTH
     Route: 042
     Dates: start: 20160413, end: 20160506
  7. ARIXTRA [Concomitant]
     Active Substance: FONDAPARINUX SODIUM
     Dosage: 2.5 MG, QD
     Route: 058
     Dates: start: 20160224, end: 20160228
  8. PACLITAXEL. [Concomitant]
     Active Substance: PACLITAXEL
     Dosage: 300 MG, 1X/MONTH
     Route: 041
     Dates: start: 20160413, end: 20160506
  9. ALOXI [Concomitant]
     Active Substance: PALONOSETRON HYDROCHLORIDE
     Dosage: 0.75 MG, 1X/MONTH
     Route: 041
     Dates: start: 20160413, end: 20160506
  10. EMEND [Concomitant]
     Active Substance: APREPITANT
     Dosage: 80 MG, QD
     Route: 048
     Dates: start: 20160507, end: 20160508
  11. EMEND [Concomitant]
     Active Substance: APREPITANT
     Dosage: 125 MG, 1X/MONTH
     Route: 048
     Dates: start: 20160413, end: 20160506
  12. CIPROFLOXACIN. [Concomitant]
     Active Substance: CIPROFLOXACIN
     Dosage: 600 MG, TID
     Route: 048
     Dates: start: 20160427, end: 20160501

REACTIONS (1)
  - Aortitis [Recovering/Resolving]

NARRATIVE: CASE EVENT DATE: 20160520
